FAERS Safety Report 6520730-5 (Version None)
Quarter: 2009Q4

REPORT INFORMATION
  Report Type: 
  Country: None (occurrence: None)
  Receive Date: 20091229
  Receipt Date: 20091215
  Transmission Date: 20100525
  Serious: Yes (Other)
  Sender: FDA-Public Use
  Company Number: US-BIOGENIDEC-2009BI041159

PATIENT
  Age: 26 Year
  Sex: Male

DRUGS (1)
  1. TYSABRI [Suspect]
     Indication: MULTIPLE SCLEROSIS
     Route: 042
     Dates: start: 20090831

REACTIONS (6)
  - BLOOD GLUCOSE DECREASED [None]
  - COGNITIVE DISORDER [None]
  - CONVULSION [None]
  - DIABETES MELLITUS [None]
  - MUSCULOSKELETAL DISORDER [None]
  - TREMOR [None]
